FAERS Safety Report 15394533 (Version 1)
Quarter: 2018Q3

REPORT INFORMATION
  Report Type: Spontaneous
  Country: US (occurrence: US)
  Receive Date: 20180918
  Receipt Date: 20180918
  Transmission Date: 20181010
  Serious: No
  Sender: FDA-Public Use
  Company Number: US-ASTRAZENECA-2018SF07073

PATIENT
  Sex: Female

DRUGS (1)
  1. BYDUREON BCISE [Suspect]
     Active Substance: EXENATIDE
     Indication: TYPE 2 DIABETES MELLITUS
     Route: 065
     Dates: start: 20180814

REACTIONS (4)
  - Injection site rash [Recovering/Resolving]
  - Injection site erythema [Unknown]
  - Feeling abnormal [Unknown]
  - Injection site warmth [Unknown]

NARRATIVE: CASE EVENT DATE: 20180817
